FAERS Safety Report 7645927-2 (Version None)
Quarter: 2011Q3

REPORT INFORMATION
  Report Type: 
  Country: None (occurrence: None)
  Receive Date: 20110729
  Receipt Date: 20110727
  Transmission Date: 20111222
  Serious: Yes (Hospitalization, Other)
  Sender: FDA-Public Use
  Company Number: ES-MERCK-1011ESP00010

PATIENT
  Age: 79 Year
  Sex: Female

DRUGS (8)
  1. FOSAMAX PLUS D [Suspect]
     Indication: OSTEOPOROSIS POSTMENOPAUSAL
     Route: 048
     Dates: start: 20100901, end: 20101101
  2. ALENDRONATE SODIUM [Suspect]
     Route: 048
     Dates: start: 19970101, end: 20020101
  3. ALENDRONATE SODIUM [Suspect]
     Route: 048
     Dates: start: 19970101, end: 20020101
  4. ATORVASTATIN CALCIUM [Concomitant]
     Indication: HYPERLIPIDAEMIA
     Route: 065
  5. CANDESARTAN CILEXETIL [Concomitant]
     Indication: HYPERTENSION
     Route: 065
  6. FOSAMAX PLUS D [Suspect]
     Indication: OSTEOPOROSIS
     Route: 048
     Dates: start: 20100901, end: 20101101
  7. ALENDRONATE SODIUM [Suspect]
     Indication: OSTEOPOROSIS POSTMENOPAUSAL
     Route: 048
     Dates: start: 20020101, end: 20100901
  8. ALENDRONATE SODIUM [Suspect]
     Indication: OSTEOPOROSIS
     Route: 048
     Dates: start: 20020101, end: 20100901

REACTIONS (5)
  - FEMUR FRACTURE [None]
  - DEEP VEIN THROMBOSIS [None]
  - FRACTURE DELAYED UNION [None]
  - ARTHROPATHY [None]
  - DEVICE RELATED INFECTION [None]
